FAERS Safety Report 16204300 (Version 1)
Quarter: 2019Q2

REPORT INFORMATION
  Report Type: Spontaneous
  Country: AT (occurrence: AT)
  Receive Date: 20190416
  Receipt Date: 20190416
  Transmission Date: 20190711
  Serious: Yes (Other)
  Sender: FDA-Public Use
  Company Number: AT-TEVA-2019-AT-1037564

PATIENT
  Sex: Male

DRUGS (1)
  1. FINASTERID [Suspect]
     Active Substance: FINASTERIDE
     Indication: ALOPECIA
     Dosage: 1.25 MILLIGRAM DAILY;

REACTIONS (6)
  - Angina pectoris [Unknown]
  - Off label use [Recovered/Resolved]
  - Libido decreased [Not Recovered/Not Resolved]
  - Palpitations [Unknown]
  - Metabolic disorder [Unknown]
  - Fatigue [Not Recovered/Not Resolved]
